FAERS Safety Report 4473618-8 (Version None)
Quarter: 2004Q4

REPORT INFORMATION
  Report Type: 
  Country: None (occurrence: None)
  Receive Date: 20040909
  Receipt Date: 20040720
  Transmission Date: 20050328
  Serious: Yes (Disabling)
  Sender: FDA-Public Use
  Company Number: A03200400407

PATIENT
  Age: 64 Year
  Sex: Male
  Weight: 113.3993 kg

DRUGS (3)
  1. ELOXATIN [Suspect]
     Indication: COLORECTAL CANCER
     Dosage: INTRAVENOUS NOS
     Route: 042
     Dates: start: 20031202, end: 20031202
  2. ELOXATIN [Suspect]
     Indication: METASTASES TO LUNG
     Dosage: INTRAVENOUS NOS
     Route: 042
     Dates: start: 20031202, end: 20031202
  3. CAPECITABINE [Concomitant]

REACTIONS (9)
  - ATROPHY [None]
  - DIFFICULTY IN WALKING [None]
  - DYSGEUSIA [None]
  - HYPOAESTHESIA [None]
  - MOVEMENT DISORDER [None]
  - PAIN [None]
  - PARAESTHESIA [None]
  - PERIPHERAL COLDNESS [None]
  - SWELLING [None]
